FAERS Safety Report 25983114 (Version 1)
Quarter: 2025Q4

REPORT INFORMATION
  Report Type: Report from Study
  Country: JP (occurrence: JP)
  Receive Date: 20251031
  Receipt Date: 20251031
  Transmission Date: 20260118
  Serious: Yes (Hospitalization)
  Sender: RADIUS PHARM
  Company Number: JP-RADIUS HEALTH INC.-2024JP010877

PATIENT
  Age: 87 Year
  Sex: Female

DRUGS (1)
  1. ABALOPARATIDE [Suspect]
     Active Substance: ABALOPARATIDE
     Indication: Product used for unknown indication
     Dosage: 80 MICROGRAM, QD
     Route: 058
     Dates: start: 20241209

REACTIONS (2)
  - Pneumonia aspiration [Recovering/Resolving]
  - Oedema peripheral [Unknown]

NARRATIVE: CASE EVENT DATE: 20241201
